FAERS Safety Report 15247474 (Version 3)
Quarter: 2019Q1

REPORT INFORMATION
  Report Type: Report from Study
  Country: GE (occurrence: GE)
  Receive Date: 20180807
  Receipt Date: 20190225
  Transmission Date: 20190417
  Serious: Yes (Life-Threatening, Hospitalization)
  Sender: FDA-Public Use
  Company Number: GE-ROCHE-2164657

PATIENT
  Age: 47 Year
  Sex: Male
  Weight: 87 kg

DRUGS (9)
  1. BLINDED TRILACICLIB [Suspect]
     Active Substance: TRILACICLIB
     Indication: SMALL CELL LUNG CANCER
     Route: 042
     Dates: start: 20171220
  2. BLINDED TRILACICLIB [Suspect]
     Active Substance: TRILACICLIB
     Route: 042
     Dates: start: 20180223, end: 20180223
  3. ATEZOLIZUMAB. [Suspect]
     Active Substance: ATEZOLIZUMAB
     Indication: SMALL CELL LUNG CANCER
     Route: 042
     Dates: start: 20171220
  4. ATEZOLIZUMAB. [Suspect]
     Active Substance: ATEZOLIZUMAB
     Route: 042
     Dates: start: 20180426, end: 20180426
  5. ETOPOSIDE PHOSPHATE [Suspect]
     Active Substance: ETOPOSIDE PHOSPHATE
     Indication: SMALL CELL LUNG CANCER
     Route: 042
     Dates: start: 20180223
  6. ETOPOSIDE PHOSPHATE [Suspect]
     Active Substance: ETOPOSIDE PHOSPHATE
     Route: 042
     Dates: start: 20171220
  7. CARBOPLATIN. [Suspect]
     Active Substance: CARBOPLATIN
     Dosage: AUC 5
     Route: 042
     Dates: start: 20180221, end: 20180221
  8. PREDNISOLONE. [Concomitant]
     Active Substance: PREDNISOLONE
     Route: 065
     Dates: start: 20180518, end: 20180518
  9. CARBOPLATIN. [Suspect]
     Active Substance: CARBOPLATIN
     Indication: SMALL CELL LUNG CANCER
     Dosage: AUC 5
     Route: 042
     Dates: start: 20171220

REACTIONS (3)
  - Epistaxis [Not Recovered/Not Resolved]
  - Thrombocytopenia [Not Recovered/Not Resolved]
  - Thrombocytopenia [Recovered/Resolved]

NARRATIVE: CASE EVENT DATE: 20180711
